FAERS Safety Report 13184628 (Version 1)
Quarter: 2017Q1

REPORT INFORMATION
  Report Type: Spontaneous
  Country: US (occurrence: US)
  Receive Date: 20170203
  Receipt Date: 20170203
  Transmission Date: 20170428
  Serious: No
  Sender: FDA-Public Use
  Company Number: US-009507513-1701USA008531

PATIENT
  Sex: Female

DRUGS (1)
  1. NEXPLANON [Suspect]
     Active Substance: ETONOGESTREL
     Dosage: UNK, FREQUENCY: 3 YEARS
     Route: 059
     Dates: start: 20150219

REACTIONS (2)
  - Adverse event [Unknown]
  - Menstrual disorder [Unknown]
